FAERS Safety Report 10713454 (Version 1)
Quarter: 2015Q1

REPORT INFORMATION
  Report Type: Spontaneous
  Country: US (occurrence: None)
  Receive Date: 20150114
  Receipt Date: 20150114
  Transmission Date: 20150721
  Serious: No
  Sender: FDA-Public Use
  Company Number: None

PATIENT
  Sex: Female

DRUGS (1)
  1. AFINITOR [Suspect]
     Active Substance: EVEROLIMUS
     Dosage: AT LEAST 4 MONTHS 1 TABLET QD PO
     Route: 048

REACTIONS (3)
  - Amnesia [None]
  - Confusional state [None]
  - Fatigue [None]
